FAERS Safety Report 10697068 (Version 2)
Quarter: 2015Q3

REPORT INFORMATION
  Report Type: Spontaneous
  Country: NO (occurrence: NO)
  Receive Date: 20150108
  Receipt Date: 20150729
  Transmission Date: 20151125
  Serious: Yes (Death, Life-Threatening, Hospitalization, Other)
  Sender: FDA-Public Use
  Company Number: NO-ACCORD-027896

PATIENT
  Age: 70 Year
  Sex: Female

DRUGS (7)
  1. PARACETAMOL [Concomitant]
     Active Substance: ACETAMINOPHEN
     Indication: PAIN
     Route: 048
     Dates: start: 20141007
  2. NORVASC [Concomitant]
     Active Substance: AMLODIPINE BESYLATE
     Indication: HYPERTENSION
     Route: 048
  3. ASASANTIN RETARD [Concomitant]
     Active Substance: ASPIRIN\DIPYRIDAMOLE
     Indication: THROMBOSIS PROPHYLAXIS
     Route: 048
     Dates: start: 20111221
  4. ENALAPRIL [Concomitant]
     Active Substance: ENALAPRIL
     Indication: HYPERTENSION
     Route: 048
     Dates: start: 20120206
  5. METHOTREXATE [Suspect]
     Active Substance: METHOTREXATE
     Indication: PRODUCT USED FOR UNKNOWN INDICATION
     Dosage: METHOTREXATE 20 MG ADMINISTERED BY MISTAKE FOR TWO DAYS INSTEAD OF SEROXAT 20 MG
     Route: 048
     Dates: start: 20141012, end: 20141014
  6. KLEXANE [Concomitant]
     Active Substance: ENOXAPARIN
     Indication: THROMBOSIS PROPHYLAXIS
     Route: 058
     Dates: start: 20141007
  7. CEFOTAXIME [Concomitant]
     Active Substance: CEFOTAXIME SODIUM
     Indication: INFECTION
     Route: 042
     Dates: start: 20141007, end: 20141024

REACTIONS (10)
  - Death [Fatal]
  - Thrombocytopenia [Recovered/Resolved]
  - Wrong drug administered [Unknown]
  - Respiratory distress [Recovered/Resolved]
  - Critical illness polyneuropathy [Recovering/Resolving]
  - Mucosal haemorrhage [Unknown]
  - Stomatitis [Recovering/Resolving]
  - Sepsis [Recovering/Resolving]
  - Neutropenia [Recovered/Resolved]
  - Device related infection [Unknown]

NARRATIVE: CASE EVENT DATE: 201410
